APPROVED DRUG PRODUCT: FLUVOXAMINE MALEATE
Active Ingredient: FLUVOXAMINE MALEATE
Strength: 25MG
Dosage Form/Route: TABLET;ORAL
Application: A075902 | Product #001 | TE Code: AB
Applicant: APOTEX INC
Approved: May 7, 2001 | RLD: No | RS: No | Type: RX